FAERS Safety Report 20894416 (Version 1)
Quarter: 2022Q2

REPORT INFORMATION
  Report Type: Spontaneous
  Country: CN (occurrence: CN)
  Receive Date: 20220531
  Receipt Date: 20220531
  Transmission Date: 20220721
  Serious: Yes (Other)
  Sender: FDA-Public Use
  Company Number: None

PATIENT
  Age: 39 Year
  Sex: Female
  Weight: 52 kg

DRUGS (8)
  1. CYCLOPHOSPHAMIDE [Suspect]
     Active Substance: CYCLOPHOSPHAMIDE
     Indication: Invasive breast carcinoma
     Dosage: UNK, QD, EC REGIMEN
     Route: 041
     Dates: start: 20220330
  2. CYCLOPHOSPHAMIDE [Suspect]
     Active Substance: CYCLOPHOSPHAMIDE
     Dosage: UNK, QD, TWO COURSES OF CHEMOTHERAPY
     Route: 041
     Dates: start: 20220420
  3. CYCLOPHOSPHAMIDE [Suspect]
     Active Substance: CYCLOPHOSPHAMIDE
     Dosage: 0.8 G, QD
     Route: 041
     Dates: start: 20220510, end: 20220510
  4. CYCLOPHOSPHAMIDE [Suspect]
     Active Substance: CYCLOPHOSPHAMIDE
     Dosage: UNK, QD, DOSE RE-INTRODUCED
     Route: 065
  5. DOXORUBICIN HYDROCHLORIDE [Suspect]
     Active Substance: DOXORUBICIN HYDROCHLORIDE
     Indication: Invasive breast carcinoma
     Dosage: UNK, QD, EC REGIMEN
     Route: 041
     Dates: start: 20220330
  6. DOXORUBICIN HYDROCHLORIDE [Suspect]
     Active Substance: DOXORUBICIN HYDROCHLORIDE
     Dosage: UNK, QD, TWO COURSES OF CHEMOTHERAPY
     Route: 041
     Dates: start: 20220420
  7. DOXORUBICIN HYDROCHLORIDE [Suspect]
     Active Substance: DOXORUBICIN HYDROCHLORIDE
     Dosage: 80 MG, QD
     Route: 041
     Dates: start: 20220510, end: 20220510
  8. DOXORUBICIN HYDROCHLORIDE [Suspect]
     Active Substance: DOXORUBICIN HYDROCHLORIDE
     Dosage: UNK, QD, DOSE RE-INTRODUCED
     Route: 041

REACTIONS (4)
  - Drug-induced liver injury [Recovering/Resolving]
  - Myelosuppression [Unknown]
  - Nausea [Recovering/Resolving]
  - Vomiting [Recovering/Resolving]

NARRATIVE: CASE EVENT DATE: 20220420
